FAERS Safety Report 19577891 (Version 1)
Quarter: 2021Q3

REPORT INFORMATION
  Report Type: Report from Study
  Country: US (occurrence: US)
  Receive Date: 20210719
  Receipt Date: 20210719
  Transmission Date: 20211014
  Serious: Yes (Hospitalization)
  Sender: FDA-Public Use
  Company Number: US-JNJFOC-20210714359

PATIENT
  Sex: Female
  Weight: 65.9 kg

DRUGS (4)
  1. EPOPROSTENOL SODIUM. [Suspect]
     Active Substance: EPOPROSTENOL SODIUM
     Dosage: VELETRI 1.5 MG VIAL INTRAVENOUS CONTINUOUS; VELETRI DOSE 65 NG/KG/MIN
     Route: 042
  2. COUMADIN [Concomitant]
     Active Substance: WARFARIN SODIUM
  3. EPOPROSTENOL SODIUM. [Suspect]
     Active Substance: EPOPROSTENOL SODIUM
     Indication: PULMONARY ARTERIAL HYPERTENSION
     Dosage: VELETRI 1.5 MG VIAL INTRAVENOUS CONTINUOUS; VELETRI DOSE 65 NG/KG/MIN
     Route: 042
  4. LETAIRIS [Concomitant]
     Active Substance: AMBRISENTAN

REACTIONS (1)
  - Device occlusion [Unknown]
